FAERS Safety Report 4837791-1 (Version None)
Quarter: 2005Q4

REPORT INFORMATION
  Report Type: 
  Country: None (occurrence: None)
  Receive Date: 20051128
  Receipt Date: 20051117
  Transmission Date: 20060501
  Serious: Yes (Hospitalization)
  Sender: FDA-Public Use
  Company Number: US-MERCK-0511USA03281

PATIENT
  Age: 57 Year
  Sex: Male
  Weight: 114 kg

DRUGS (7)
  1. VIOXX [Suspect]
     Indication: ARTHRITIS
     Route: 048
     Dates: start: 20000622, end: 20031206
  2. FLEXERIL [Concomitant]
     Indication: PAIN
     Route: 065
  3. FLEXERIL [Concomitant]
     Indication: MUSCLE SPASMS
     Route: 065
  4. LORTAB [Concomitant]
     Indication: PAIN
     Route: 065
  5. LORTAB [Concomitant]
     Indication: MUSCLE SPASMS
     Route: 065
  6. VICODIN [Concomitant]
     Indication: PAIN
     Route: 065
  7. VICODIN [Concomitant]
     Indication: MUSCLE SPASMS
     Route: 065

REACTIONS (2)
  - CORONARY ARTERY OCCLUSION [None]
  - MYOCARDIAL INFARCTION [None]
